FAERS Safety Report 12879509 (Version 1)
Quarter: 2016Q4

REPORT INFORMATION
  Report Type: Other
  Country: IT (occurrence: IT)
  Receive Date: 20161025
  Receipt Date: 20161025
  Transmission Date: 20170207
  Serious: Yes (Death)
  Sender: FDA-Public Use
  Company Number: IT-LUPIN PHARMACEUTICALS INC.-2016-00443

PATIENT
  Age: 4 Year
  Sex: Male

DRUGS (2)
  1. CEFTRIAXONE. [Suspect]
     Active Substance: CEFTRIAXONE
     Indication: BRONCHITIS
     Dosage: 180MG
     Route: 065
  2. BETA-METHASONE [Concomitant]
     Indication: BRONCHITIS
     Dosage: 1MG
     Route: 065

REACTIONS (1)
  - Anaphylactic shock [Fatal]
